FAERS Safety Report 7011276-9 (Version None)
Quarter: 2010Q3

REPORT INFORMATION
  Report Type: 
  Country: None (occurrence: None)
  Receive Date: 20100922
  Receipt Date: 20100922
  Transmission Date: 20110219
  Serious: No
  Sender: FDA-Public Use
  Company Number: None

PATIENT
  Age: 33 Year
  Sex: Male
  Weight: 74.8435 kg

DRUGS (1)
  1. LEXAPRO [Suspect]

REACTIONS (2)
  - LOSS OF LIBIDO [None]
  - SEXUAL DYSFUNCTION [None]
